FAERS Safety Report 16508191 (Version 1)
Quarter: 2019Q3

REPORT INFORMATION
  Report Type: Spontaneous
  Country: US (occurrence: US)
  Receive Date: 20190702
  Receipt Date: 20190702
  Transmission Date: 20191004
  Serious: Yes (Disabling)
  Sender: FDA-Public Use
  Company Number: US-ROCHE-2154811

PATIENT
  Sex: Female

DRUGS (2)
  1. XELODA [Suspect]
     Active Substance: CAPECITABINE
     Dosage: FOR 1 WEEK
     Route: 065
  2. XELODA [Suspect]
     Active Substance: CAPECITABINE
     Indication: NON-SMALL CELL LUNG CANCER
     Dosage: FOR 1 WEEK
     Route: 065
     Dates: start: 201802

REACTIONS (3)
  - Off label use [Unknown]
  - Intentional product use issue [Unknown]
  - Vomiting [Unknown]
